FAERS Safety Report 11782068 (Version 2)
Quarter: 2016Q1

REPORT INFORMATION
  Report Type: Spontaneous
  Country: US (occurrence: US)
  Receive Date: 20151126
  Receipt Date: 20160118
  Transmission Date: 20160525
  Serious: Yes (Death)
  Sender: FDA-Public Use
  Company Number: US-009507513-1511USA014167

PATIENT
  Sex: Male

DRUGS (2)
  1. EMEND [Suspect]
     Active Substance: APREPITANT
     Indication: VOMITING
  2. EMEND [Suspect]
     Active Substance: APREPITANT
     Indication: NAUSEA

REACTIONS (1)
  - Death [Fatal]
